FAERS Safety Report 18505467 (Version 1)
Quarter: 2020Q4

REPORT INFORMATION
  Report Type: Spontaneous
  Country: CA (occurrence: CA)
  Receive Date: 20201116
  Receipt Date: 20201116
  Transmission Date: 20210114
  Serious: Yes (Other)
  Sender: FDA-Public Use
  Company Number: CA-009507513-2011CAN006575

PATIENT
  Age: 76 Year
  Sex: Female

DRUGS (2)
  1. BRENTUXIMAB VEDOTIN [Suspect]
     Active Substance: BRENTUXIMAB VEDOTIN
     Indication: HODGKIN^S DISEASE
     Dosage: UNK
     Dates: start: 201711, end: 201911
  2. KEYTRUDA [Suspect]
     Active Substance: PEMBROLIZUMAB
     Indication: HODGKIN^S DISEASE
     Dosage: UNK
     Dates: start: 201711, end: 201911

REACTIONS (1)
  - Hodgkin^s disease recurrent [Unknown]
